FAERS Safety Report 7597601-9 (Version None)
Quarter: 2011Q3

REPORT INFORMATION
  Report Type: 
  Country: None (occurrence: None)
  Receive Date: 20110708
  Receipt Date: 20110701
  Transmission Date: 20111222
  Serious: Yes (Death)
  Sender: FDA-Public Use
  Company Number: JP-JNJFOC-20110700117

PATIENT
  Age: 61 Year
  Sex: Female

DRUGS (3)
  1. ASPIRIN [Concomitant]
     Route: 048
     Dates: end: 20110601
  2. DEPAKENE [Concomitant]
     Indication: SCHIZOPHRENIA
     Route: 048
     Dates: end: 20110601
  3. RISPERDAL CONSTA [Suspect]
     Indication: SCHIZOPHRENIA
     Route: 030
     Dates: start: 20101113, end: 20110601

REACTIONS (1)
  - SUDDEN DEATH [None]
